FAERS Safety Report 4614832-8 (Version None)
Quarter: 2005Q1

REPORT INFORMATION
  Report Type: 
  Country: None (occurrence: None)
  Receive Date: 20050318
  Receipt Date: 20050318
  Transmission Date: 20050727
  Serious: Yes (Other)
  Sender: FDA-Public Use
  Company Number: None

PATIENT
  Sex: Male
  Weight: 87.1 kg

DRUGS (5)
  1. TEMOZOLOMIDE 200 MG/M2 [Suspect]
     Indication: ANAPLASTIC ASTROCYTOMA
     Dosage: 200 MG/M2 DAILY ON DAYS 1-5 OF 1ST WEEK OF RADIATION REPEATED EVERY 28  DAYS FOR 12 CYCLES
     Dates: start: 20050314
  2. RADIATION THERAPY 59.4 GY [Suspect]
     Dosage: 59.4 GY(1.8 GY X 33 FRACTIONS)
  3. DEXAMETHASONE [Concomitant]
  4. DILANTIN [Concomitant]
  5. GRANISITRON [Concomitant]

REACTIONS (1)
  - GRAND MAL CONVULSION [None]
